FAERS Safety Report 7555014-X (Version None)
Quarter: 2011Q2

REPORT INFORMATION
  Report Type: 
  Country: None (occurrence: None)
  Receive Date: 20110615
  Receipt Date: 20110615
  Transmission Date: 20111010
  Serious: Yes (Hospitalization)
  Sender: FDA-Public Use
  Company Number: None

PATIENT
  Age: 64 Year
  Sex: Female
  Weight: 131.5431 kg

DRUGS (1)
  1. PRADAXA [Suspect]
     Indication: CEREBROVASCULAR ACCIDENT
     Dosage: 1'50 MG TWICE A DAY PO
     Route: 048
     Dates: start: 20101203, end: 20110303

REACTIONS (2)
  - DEPRESSION [None]
  - CEREBROVASCULAR ACCIDENT [None]
